FAERS Safety Report 25863358 (Version 1)
Quarter: 2025Q3

REPORT INFORMATION
  Report Type: Spontaneous
  Country: PR (occurrence: PR)
  Receive Date: 20250930
  Receipt Date: 20250930
  Transmission Date: 20251021
  Serious: Yes (Other)
  Sender: RANBAXY
  Company Number: PR-SUN PHARMACEUTICAL INDUSTRIES LTD-2025RR-528083

PATIENT
  Age: 76 Year
  Sex: Female

DRUGS (1)
  1. OCTREOTIDE [Suspect]
     Active Substance: OCTREOTIDE
     Indication: Neuroglycopenia
     Route: 065

REACTIONS (2)
  - Drug intolerance [Unknown]
  - Cardiovascular disorder [Unknown]
